FAERS Safety Report 5914338-X (Version None)
Quarter: 2008Q4

REPORT INFORMATION
  Report Type: 
  Country: None (occurrence: None)
  Receive Date: 20081009
  Receipt Date: 20080929
  Transmission Date: 20090506
  Serious: Yes (Hospitalization)
  Sender: FDA-Public Use
  Company Number: DE-PFIZER INC-2008084364

PATIENT
  Sex: Female
  Weight: 96 kg

DRUGS (3)
  1. AROMASIN [Suspect]
     Indication: BREAST CANCER
     Route: 048
     Dates: start: 20040101
  2. IBUPROFEN [Suspect]
  3. CELEBREX [Suspect]

REACTIONS (2)
  - GRANULOMATOUS LIVER DISEASE [None]
  - HEPATIC STEATOSIS [None]
